FAERS Safety Report 9275902 (Version 1)
Quarter: 2013Q2

REPORT INFORMATION
  Report Type: Spontaneous
  Country: US (occurrence: None)
  Receive Date: 20130502
  Receipt Date: 20130502
  Transmission Date: 20140414
  Serious: No
  Sender: FDA-Public Use
  Company Number: None

PATIENT
  Age: 82 Year
  Sex: Female
  Weight: 63.5 kg

DRUGS (1)
  1. SULFAMETH-TRIMETH [Suspect]
     Indication: SINUSITIS
     Dosage: 2 TWICE FOR 10 DAYS
     Dates: start: 20130416, end: 20130423

REACTIONS (3)
  - Stomatitis [None]
  - Swollen tongue [None]
  - Pain [None]
